FAERS Safety Report 13090443 (Version 9)
Quarter: 2017Q3

REPORT INFORMATION
  Report Type: Report from Study
  Country: US (occurrence: US)
  Receive Date: 20170105
  Receipt Date: 20170725
  Transmission Date: 20171127
  Serious: Yes (Hospitalization, Other)
  Sender: FDA-Public Use
  Company Number: US-ACTELION-A-US2016-139097

PATIENT
  Age: 56 Year
  Sex: Female
  Weight: 44.44 kg

DRUGS (16)
  1. TREPROSTINIL DIOLAMIN [Suspect]
     Active Substance: TREPROSTINIL DIOLAMINE
     Indication: PULMONARY ARTERIAL HYPERTENSION
     Dosage: 0.5 MG, TID
     Route: 048
     Dates: start: 20160406
  2. PRAMIPEXOLE. [Concomitant]
     Active Substance: PRAMIPEXOLE
     Dosage: 0.5 MG, QPM
  3. PROTONIX [Concomitant]
     Active Substance: PANTOPRAZOLE SODIUM
     Dosage: 40 MG, UNK
  4. VELETRI [Suspect]
     Active Substance: EPOPROSTENOL
     Indication: PULMONARY ARTERIAL HYPERTENSION
     Dosage: 17 NG/KG, PER MIN
     Route: 042
     Dates: start: 20160705
  5. ALDACTONE [Concomitant]
     Active Substance: SPIRONOLACTONE
     Dosage: 50 MG, QD
  6. VELETRI [Suspect]
     Active Substance: EPOPROSTENOL
     Dosage: 30 NG/KG, PER MIN
     Route: 042
  7. SILDENAFIL. [Concomitant]
     Active Substance: SILDENAFIL
     Dosage: 80 MG, TID
  8. CHANTIX [Suspect]
     Active Substance: VARENICLINE TARTRATE
     Indication: PRODUCT USED FOR UNKNOWN INDICATION
     Route: 065
  9. METOPROLOL. [Concomitant]
     Active Substance: METOPROLOL
     Dosage: 25 MG, BID
  10. BUMETANIDE. [Concomitant]
     Active Substance: BUMETANIDE
     Dosage: 2 MG, BID
  11. POTASSIUM CHLORIDE. [Concomitant]
     Active Substance: POTASSIUM CHLORIDE
     Dosage: 10 MCG, QD
  12. MIRALAX [Concomitant]
     Active Substance: POLYETHYLENE GLYCOL 3350
  13. FERROUS SULFATE. [Concomitant]
     Active Substance: FERROUS SULFATE
     Dosage: UNK MG, BID
  14. VELETRI [Suspect]
     Active Substance: EPOPROSTENOL
     Dosage: 19 NG/KG, PER MIN
     Route: 042
     Dates: start: 20160705
  15. ASA [Concomitant]
     Active Substance: ASPIRIN
     Dosage: 81 MG, QD
  16. COMBIVENT [Concomitant]
     Active Substance: ALBUTEROL SULFATE\IPRATROPIUM BROMIDE
     Dosage: UNK, PRN
     Route: 045

REACTIONS (38)
  - Aspiration pleural cavity [Unknown]
  - Fluid retention [Recovering/Resolving]
  - Multiple allergies [Unknown]
  - Weight decreased [Unknown]
  - Peripheral swelling [Unknown]
  - Chest discomfort [Unknown]
  - Pulmonary oedema [Unknown]
  - Paracentesis [Unknown]
  - Musculoskeletal stiffness [Unknown]
  - Decreased appetite [Unknown]
  - Ascites [Unknown]
  - Disease progression [Unknown]
  - Headache [Unknown]
  - Dyspnoea exertional [Unknown]
  - Gastrointestinal disorder [Unknown]
  - Wheezing [Unknown]
  - Device use error [Unknown]
  - Constipation [Unknown]
  - Respiratory failure [Unknown]
  - Pulmonary hypertension [Unknown]
  - Body mass index decreased [Unknown]
  - Rectal prolapse [Unknown]
  - Flatulence [Unknown]
  - Pain in jaw [Unknown]
  - Musculoskeletal chest pain [Unknown]
  - Mucous stools [Unknown]
  - Dysgeusia [Unknown]
  - Gait disturbance [Unknown]
  - Abdominal distension [Unknown]
  - Proctocolectomy [Unknown]
  - Dyspnoea [Recovering/Resolving]
  - Sinus congestion [Unknown]
  - Anaemia [Unknown]
  - Nausea [Unknown]
  - Diarrhoea [Unknown]
  - Localised oedema [Unknown]
  - Flushing [Unknown]
  - Eating disorder [Unknown]
